FAERS Safety Report 5206652-0 (Version None)
Quarter: 2006Q4

REPORT INFORMATION
  Report Type: 
  Country: None (occurrence: None)
  Receive Date: 20061026
  Receipt Date: 20060710
  Transmission Date: 20070319
  Serious: No
  Sender: FDA-Public Use
  Company Number: 2006086897

PATIENT
  Age: 53 Year
  Sex: Female
  Weight: 72.5755 kg

DRUGS (19)
  1. LYRICA [Suspect]
     Indication: NEURALGIA
     Dosage: 150 MG (75 MG, 2 IN 1 D); ORAL
     Route: 048
     Dates: start: 20060707
  2. ALL OTHER THERAPEUTIC PRODUCTS (ALL OTHER THERAPEUTIC PRODUCTS) [Suspect]
     Indication: DRUG USE FOR UNKNOWN INDICATION
  3. ENALAPRIL MALEATE [Concomitant]
  4. EFFEXOR [Concomitant]
  5. ZELNORM [Concomitant]
  6. PREVACID [Concomitant]
  7. CRESTOR [Concomitant]
  8. VERAPAMIL [Concomitant]
  9. FROVA (FROVATRIPTAN) [Concomitant]
  10. IMITREX [Concomitant]
  11. NABUMETONE [Concomitant]
  12. BLACK COHOSH (CIMICIFUGA RACEMOSA ROOT) [Concomitant]
  13. ASPIRIN [Concomitant]
  14. STOOL SOFTENER (DOCUSATE SODIUM) [Concomitant]
  15. FISH OIL (FISH OIL) [Concomitant]
  16. OPHTHALMOLOGICALS [Concomitant]
  17. FIBRE, DIETARY [Concomitant]
  18. MULTIPLE VITAMINS (ASCORBIC ACID, ERGOCALCIFEROL, FOLIC ACID, RETINOL, [Concomitant]
  19. HYDROCODONE [Concomitant]

REACTIONS (4)
  - DRUG INEFFECTIVE [None]
  - DRUG INTERACTION [None]
  - FEELING ABNORMAL [None]
  - HEADACHE [None]
